FAERS Safety Report 9334747 (Version 1)
Quarter: 2013Q2

REPORT INFORMATION
  Report Type: Spontaneous
  Country: US (occurrence: US)
  Receive Date: 20130606
  Receipt Date: 20130606
  Transmission Date: 20140414
  Serious: No
  Sender: FDA-Public Use
  Company Number: US-AMGEN-USASP2013013455

PATIENT
  Age: 78 Year
  Sex: Female
  Weight: 60.32 kg

DRUGS (4)
  1. PROLIA [Suspect]
     Indication: OSTEOPOROSIS POSTMENOPAUSAL
     Dosage: UNK
     Dates: start: 201208
  2. CHOLESTEROL [Concomitant]
  3. CALCIUM WITH VITAMIN D             /00944201/ [Concomitant]
     Dosage: 1200 MG, QD
  4. PRILOSEC                           /00661201/ [Concomitant]

REACTIONS (4)
  - Abdominal distension [Recovered/Resolved]
  - Weight increased [Recovered/Resolved]
  - Oedema peripheral [Recovered/Resolved]
  - Back pain [Recovered/Resolved]
